FAERS Safety Report 7395136-X (Version None)
Quarter: 2011Q2

REPORT INFORMATION
  Report Type: 
  Country: None (occurrence: None)
  Receive Date: 20110405
  Receipt Date: 20110331
  Transmission Date: 20111010
  Serious: Yes (Life-Threatening, Hospitalization)
  Sender: FDA-Public Use
  Company Number: US-SHIRE-SPV1-2011-00405

PATIENT
  Sex: Male
  Weight: 43.084 kg

DRUGS (2)
  1. INTUNIV [Suspect]
     Indication: ATTENTION DEFICIT/HYPERACTIVITY DISORDER
     Dosage: 3 MG, 1X/DAY:QD (EVERY AM)
     Route: 048
     Dates: start: 20110204, end: 20110101
  2. ABILIFY [Suspect]
     Indication: BIPOLAR DISORDER
     Dosage: 10 MG, 1X/DAY:QD (EVERY AM)
     Route: 048
     Dates: start: 20110201

REACTIONS (3)
  - HYPOTENSION [None]
  - DRUG INTERACTION [None]
  - BRADYCARDIA [None]
